FAERS Safety Report 21363683 (Version 1)
Quarter: 2022Q3

REPORT INFORMATION
  Report Type: Report from Study
  Country: GB (occurrence: GB)
  Receive Date: 20220922
  Receipt Date: 20220922
  Transmission Date: 20221027
  Serious: Yes (Other)
  Sender: FDA-Public Use
  Company Number: GB-TAKEDA-2021TUS045647

PATIENT
  Age: 78 Year
  Sex: Female

DRUGS (1)
  1. VEDOLIZUMAB [Suspect]
     Active Substance: VEDOLIZUMAB
     Indication: Crohn^s disease
     Dosage: 108 MILLIGRAM, Q2WEEKS
     Route: 058
     Dates: start: 20210702

REACTIONS (10)
  - Breast cancer [Unknown]
  - Mucosal disorder [Unknown]
  - Angular cheilitis [Unknown]
  - Rosacea [Unknown]
  - Device issue [Unknown]
  - Product leakage [Unknown]
  - Rash [Unknown]
  - Oropharyngeal pain [Unknown]
  - Fatigue [Unknown]
  - Mental disorder [Unknown]
